FAERS Safety Report 23193665 (Version 1)
Quarter: 2023Q4

REPORT INFORMATION
  Report Type: Spontaneous
  Country: US (occurrence: US)
  Receive Date: 20231116
  Receipt Date: 20231116
  Transmission Date: 20240110
  Serious: Yes (Disabling, Other)
  Sender: FDA-Public Use
  Company Number: US-NOVOPROD-1138257

PATIENT
  Age: 48 Year
  Sex: Female

DRUGS (1)
  1. INSULIN ASPART [Suspect]
     Active Substance: INSULIN ASPART
     Indication: Type 1 diabetes mellitus
     Dosage: UNK
     Route: 058
     Dates: start: 2021

REACTIONS (2)
  - Cerebrovascular accident [Not Recovered/Not Resolved]
  - Cerebral microhaemorrhage [Not Recovered/Not Resolved]

NARRATIVE: CASE EVENT DATE: 20210101
